FAERS Safety Report 4942352-X (Version None)
Quarter: 2006Q1

REPORT INFORMATION
  Report Type: 
  Country: None (occurrence: None)
  Receive Date: 20060313
  Receipt Date: 20060106
  Transmission Date: 20060701
  Serious: No
  Sender: FDA-Public Use
  Company Number: US-GLAXOSMITHKLINE-A0588076A

PATIENT
  Age: 26 Year

DRUGS (1)
  1. NICORETTE FRESHMINT [Suspect]
     Dates: start: 20050104, end: 20050104

REACTIONS (1)
  - THROAT IRRITATION [None]
